FAERS Safety Report 25775513 (Version 1)
Quarter: 2025Q3

REPORT INFORMATION
  Report Type: Spontaneous
  Country: EU (occurrence: EU)
  Receive Date: 20250909
  Receipt Date: 20250909
  Transmission Date: 20251021
  Serious: Yes (Life-Threatening, Hospitalization)
  Sender: ACCORD
  Company Number: EU-MLMSERVICE-20250826-PI626340-00295-1

PATIENT
  Age: 37 Year
  Sex: Male

DRUGS (1)
  1. SERTRALINE [Suspect]
     Active Substance: SERTRALINE HYDROCHLORIDE
     Indication: Suicidal ideation

REACTIONS (6)
  - Stevens-Johnson syndrome [Recovering/Resolving]
  - Cardiogenic shock [Unknown]
  - Acute kidney injury [Unknown]
  - Myocarditis [Unknown]
  - Myopathy [Unknown]
  - Peripheral ischaemia [Recovered/Resolved]
